FAERS Safety Report 8161961-0 (Version None)
Quarter: 2012Q1

REPORT INFORMATION
  Report Type: 
  Country: None (occurrence: None)
  Receive Date: 20120224
  Receipt Date: 20120220
  Transmission Date: 20120608
  Serious: Yes (Other)
  Sender: FDA-Public Use
  Company Number: IN-PFIZER INC-2012020143

PATIENT
  Age: 50 Year
  Sex: Male

DRUGS (1)
  1. SUTENT [Suspect]
     Indication: METASTATIC RENAL CELL CARCINOMA
     Dosage: 37.5 MG, 1X/DAY
     Route: 048
     Dates: start: 20111224

REACTIONS (4)
  - RECTAL ULCER [None]
  - SKIN ULCER [None]
  - MOUTH ULCERATION [None]
  - FURUNCLE [None]
